FAERS Safety Report 8880249 (Version 1)
Quarter: 2012Q4

REPORT INFORMATION
  Report Type: 
  Country: PH (occurrence: PH)
  Receive Date: 20121101
  Receipt Date: 20121101
  Transmission Date: 20130627
  Serious: Yes (Other)
  Sender: FDA-Public Use
  Company Number: PHHY2012PH098568

PATIENT
  Sex: Male

DRUGS (2)
  1. GLIVEC [Suspect]
     Indication: CHRONIC MYELOID LEUKAEMIA
     Dosage: 400 mg, daily
     Route: 048
     Dates: start: 20120613, end: 20121006
  2. GLIVEC [Suspect]
     Dosage: 300 mg, daily
     Route: 048
     Dates: start: 20121006

REACTIONS (2)
  - Asthma [Unknown]
  - Hypersensitivity [Unknown]
